FAERS Safety Report 7176445-6 (Version None)
Quarter: 2010Q4

REPORT INFORMATION
  Report Type: 
  Country: None (occurrence: None)
  Receive Date: 20101220
  Receipt Date: 20101209
  Transmission Date: 20110411
  Serious: Yes (Other)
  Sender: FDA-Public Use
  Company Number: CA-JNJFOC-20101204668

PATIENT
  Sex: Female
  Weight: 69 kg

DRUGS (3)
  1. REMICADE [Suspect]
     Indication: CROHN'S DISEASE
     Dosage: 2ND INFUSION
     Route: 042
  2. REMICADE [Suspect]
     Dosage: 1ST INFUSION
     Route: 042
  3. REMICADE [Suspect]
     Dosage: 3RD INFUSION
     Route: 042

REACTIONS (3)
  - DYSURIA [None]
  - URINARY RETENTION [None]
  - URINARY TRACT INFECTION [None]
